FAERS Safety Report 9795721 (Version 1)
Quarter: 2014Q1

REPORT INFORMATION
  Report Type: Spontaneous
  Country: US (occurrence: US)
  Receive Date: 20140103
  Receipt Date: 20140103
  Transmission Date: 20141002
  Serious: Yes (Death)
  Sender: FDA-Public Use
  Company Number: US-UCBSA-107643

PATIENT
  Age: 87 Year
  Sex: Female

DRUGS (8)
  1. ALPRAZOLAM [Suspect]
     Dosage: ROUTE: INGESTION
     Route: 048
  2. AMLODIPINE [Suspect]
     Dosage: ROUTE: INGESTION
  3. ATENOLOL [Suspect]
     Dosage: ROUTE: INGESTION
  4. TRAMADOL [Suspect]
     Dosage: ROUTE: INGESTION
  5. HYDROCHLOROTHIAZIDE/ VALSARTAN [Suspect]
     Dosage: ROUTE: INGESTION
  6. SERTRALINE [Suspect]
     Dosage: ROUTE: INGESTION
  7. TRYPTOPHAN [Suspect]
     Dosage: ROUTE: INGESTION
  8. DONEPEZIL [Suspect]
     Dosage: ROUTE: INGESTION

REACTIONS (1)
  - Medication error [Fatal]
